FAERS Safety Report 9619434 (Version 1)
Quarter: 2013Q4

REPORT INFORMATION
  Report Type: Report from Study
  Country: NL (occurrence: NL)
  Receive Date: 20131014
  Receipt Date: 20131014
  Transmission Date: 20140711
  Serious: Yes (Death, Hospitalization)
  Sender: FDA-Public Use
  Company Number: NL-JNJFOC-20131006476

PATIENT
  Age: 9 Decade
  Sex: Male

DRUGS (10)
  1. ABIRATERONE ACETATE [Suspect]
     Indication: PROSTATE CANCER
     Route: 048
     Dates: start: 20130612, end: 20130814
  2. ESOMEPRAZOLE [Concomitant]
     Route: 048
  3. CALCICHEW D3 [Concomitant]
     Route: 048
  4. PERSANTIN [Concomitant]
     Route: 048
  5. SIMVASTATIN [Concomitant]
     Route: 048
  6. TAMSULOSIN HCL [Concomitant]
     Route: 048
  7. PREDNISOLONE [Concomitant]
     Route: 048
  8. BETAGAN [Concomitant]
     Route: 047
  9. XALANTAN [Concomitant]
     Route: 047
  10. NUTRIDRINK [Concomitant]
     Route: 048

REACTIONS (1)
  - Diarrhoea [Fatal]
